FAERS Safety Report 4459889-2 (Version None)
Quarter: 2004Q3

REPORT INFORMATION
  Report Type: 
  Country: None (occurrence: None)
  Receive Date: 20040928
  Receipt Date: 20030805
  Transmission Date: 20050211
  Serious: No
  Sender: FDA-Public Use
  Company Number: US-GLAXOSMITHKLINE-A0422698A

PATIENT
  Age: 67 Year
  Sex: Female
  Weight: 36.4 kg

DRUGS (7)
  1. SEREVENT [Suspect]
     Indication: ILL-DEFINED DISORDER
     Dosage: 1PUFF TWICE PER DAY
     Route: 055
  2. COMBIVENT [Concomitant]
     Dosage: 2PUFF TWICE PER DAY
     Route: 055
  3. FLOVENT [Concomitant]
     Dosage: 2PUFF TWICE PER DAY
     Route: 055
  4. ASPIRIN [Concomitant]
     Dosage: 81MG PER DAY
     Route: 048
  5. CALCIUM [Concomitant]
     Route: 048
  6. M.V.I. [Concomitant]
     Route: 048
  7. FOSAMAX [Concomitant]
     Dosage: 70MG WEEKLY
     Route: 048

REACTIONS (3)
  - HYPOAESTHESIA ORAL [None]
  - MOUTH ULCERATION [None]
  - TREMOR [None]
